FAERS Safety Report 4283124-1 (Version None)
Quarter: 2004Q1

REPORT INFORMATION
  Report Type: 
  Country: None (occurrence: None)
  Receive Date: 20040129
  Receipt Date: 20040115
  Transmission Date: 20041129
  Serious: Yes (Other)
  Sender: FDA-Public Use
  Company Number: NO-JNJFOC-20030801534

PATIENT
  Sex: Female

DRUGS (1)
  1. REMICADE [Suspect]
     Indication: PYODERMA GANGRENOSUM
     Dosage: INTRAVENOUS
     Route: 042
     Dates: start: 20011101, end: 20011101

REACTIONS (11)
  - BACK PAIN [None]
  - BONE INFECTION [None]
  - CHILLS [None]
  - HYPERTENSION [None]
  - INFLUENZA LIKE ILLNESS [None]
  - INFUSION RELATED REACTION [None]
  - NAUSEA [None]
  - PYREXIA [None]
  - SKIN GRAFT [None]
  - SUPRAPUBIC PAIN [None]
  - URINARY TRACT INFECTION [None]
